FAERS Safety Report 5927223-4 (Version None)
Quarter: 2008Q4

REPORT INFORMATION
  Report Type: 
  Country: None (occurrence: None)
  Receive Date: 20081022
  Receipt Date: 20081010
  Transmission Date: 20090506
  Serious: Yes (Other)
  Sender: FDA-Public Use
  Company Number: ES-PFIZER INC-2008086803

PATIENT
  Age: 60 Year
  Sex: Female

DRUGS (4)
  1. LYRICA [Suspect]
     Indication: GENERALISED ANXIETY DISORDER
     Dosage: DAILY DOSE:300MG
     Route: 048
     Dates: start: 20080101
  2. LYRICA [Suspect]
     Indication: NEURALGIA
  3. CYMBALTA [Suspect]
     Indication: GENERALISED ANXIETY DISORDER
     Dosage: DAILY DOSE:60MG
     Route: 048
     Dates: start: 20080101, end: 20080101
  4. CYMBALTA [Suspect]
     Indication: NEURALGIA

REACTIONS (2)
  - HAEMATOMA [None]
  - VASCULAR SKIN DISORDER [None]
